FAERS Safety Report 5259018-1 (Version None)
Quarter: 2007Q1

REPORT INFORMATION
  Report Type: 
  Country: None (occurrence: None)
  Receive Date: 20070308
  Receipt Date: 20070227
  Transmission Date: 20070707
  Serious: Yes (Disabling, Other)
  Sender: FDA-Public Use
  Company Number: DE-PURDUE-DEU_2006_0002675

PATIENT
  Age: 71 Year
  Sex: Male

DRUGS (3)
  1. PALLADON RETARD [Suspect]
     Indication: PROCEDURAL PAIN
     Dosage: 16 MG, TID
     Route: 048
     Dates: start: 20061001
  2. PALLADON RETARD [Suspect]
     Dosage: 16 MG, BID
  3. LYRICA [Concomitant]

REACTIONS (2)
  - FALL [None]
  - RADIUS FRACTURE [None]
